FAERS Safety Report 21520695 (Version 1)
Quarter: 2022Q4

REPORT INFORMATION
  Report Type: Spontaneous
  Country: CA (occurrence: CA)
  Receive Date: 20221028
  Receipt Date: 20221028
  Transmission Date: 20230112
  Serious: Yes (Death, Other)
  Sender: FDA-Public Use
  Company Number: CA-PFIZER INC-PV202200091498

PATIENT
  Age: 73 Year
  Sex: Male

DRUGS (2)
  1. ENCORAFENIB [Suspect]
     Active Substance: ENCORAFENIB
     Indication: Malignant melanoma
     Dosage: UNK
     Dates: start: 2021, end: 2021
  2. BINIMETINIB [Suspect]
     Active Substance: BINIMETINIB
     Indication: Malignant melanoma
     Dosage: UNK
     Dates: start: 2021, end: 2021

REACTIONS (2)
  - Neoplasm progression [Fatal]
  - Central nervous system lesion [Unknown]

NARRATIVE: CASE EVENT DATE: 20210201
